FAERS Safety Report 20708323 (Version 1)
Quarter: 2022Q2

REPORT INFORMATION
  Report Type: Spontaneous
  Country: HR (occurrence: HR)
  Receive Date: 20220414
  Receipt Date: 20220414
  Transmission Date: 20220720
  Serious: Yes (Other)
  Sender: FDA-Public Use
  Company Number: None

PATIENT
  Age: 50 Year
  Sex: Female

DRUGS (3)
  1. CLONAZEPAM [Suspect]
     Active Substance: CLONAZEPAM
     Dosage: 15 MG, DAILY, 0,5MG X 30TBL
     Route: 048
     Dates: start: 20220225, end: 20220225
  2. VENLAFAXINE HYDROCHLORIDE [Suspect]
     Active Substance: VENLAFAXINE HYDROCHLORIDE
     Dosage: 375 MG, DAILY (75MG X 5TBL)
     Route: 048
     Dates: start: 20220225, end: 20220225
  3. XANAX [Suspect]
     Active Substance: ALPRAZOLAM
     Dosage: 15 DF, DAILY, 10-15TBL, (ADR IS ADEQUATELY LABELLED: NO SOMNOLENCE: YES OXYGEN SATURATION LOW: NO)
     Route: 048
     Dates: start: 20220225, end: 20220225

REACTIONS (4)
  - Oxygen saturation decreased [Unknown]
  - Somnolence [Unknown]
  - Suicide attempt [Unknown]
  - Intentional overdose [Unknown]

NARRATIVE: CASE EVENT DATE: 20220225
